FAERS Safety Report 21643788 (Version 3)
Quarter: 2022Q4

REPORT INFORMATION
  Report Type: Spontaneous
  Country: CN (occurrence: CN)
  Receive Date: 20221125
  Receipt Date: 20221215
  Transmission Date: 20230113
  Serious: Yes (Death, Life-Threatening, Hospitalization, Other)
  Sender: FDA-Public Use
  Company Number: CN-PFIZER INC-PV202200108628

PATIENT
  Age: 4 Month
  Sex: Male
  Weight: 9.5 kg

DRUGS (5)
  1. METHYLPREDNISOLONE [Suspect]
     Active Substance: METHYLPREDNISOLONE
     Indication: Necrotising colitis
     Dosage: UNK
  2. METHYLPREDNISOLONE [Suspect]
     Active Substance: METHYLPREDNISOLONE
     Indication: Sepsis
  3. MOMETASONE [Suspect]
     Active Substance: MOMETASONE
     Indication: Rash
     Dosage: UNK (A SMALL AMOUNT), FOR 2.6 MONTHS
  4. HYDROCORTISONE [Suspect]
     Active Substance: HYDROCORTISONE
     Indication: Secondary adrenocortical insufficiency
     Dosage: 10 MG, 3X/DAY(Q8H)
     Route: 042
  5. DEXAMETHASONE [Suspect]
     Active Substance: DEXAMETHASONE
     Dosage: 2 MG, SINGLE
     Route: 042

REACTIONS (4)
  - Drug hypersensitivity [Fatal]
  - Cushing^s syndrome [Fatal]
  - Blood corticotrophin decreased [Fatal]
  - Cortisol decreased [Fatal]

NARRATIVE: CASE EVENT DATE: 20200201
